FAERS Safety Report 24578413 (Version 1)
Quarter: 2024Q4

REPORT INFORMATION
  Report Type: Report from Study
  Country: US (occurrence: US)
  Receive Date: 20241105
  Receipt Date: 20241105
  Transmission Date: 20250114
  Serious: No
  Sender: ROCHE
  Company Number: US-ROCHE-10000121364

PATIENT
  Age: 27 Year
  Sex: Female
  Weight: 62.14 kg

DRUGS (1)
  1. OCREVUS [Suspect]
     Active Substance: OCRELIZUMAB
     Indication: Multiple sclerosis
     Dosage: INITIAL DOSE OF OCREVUS 300 MG WAS ON 31 MAY 2024 AND SECOND HALF DOSE ON 14 JUNE 2024. THE MAINTENA
     Route: 065
     Dates: start: 20240531

REACTIONS (2)
  - Fungal infection [Recovered/Resolved]
  - Ear infection [Recovered/Resolved]

NARRATIVE: CASE EVENT DATE: 20240621
